FAERS Safety Report 18273461 (Version 1)
Quarter: 2020Q3

REPORT INFORMATION
  Report Type: Spontaneous
  Country: FR (occurrence: FR)
  Receive Date: 20200916
  Receipt Date: 20200916
  Transmission Date: 20201103
  Serious: Yes (Other)
  Sender: FDA-Public Use
  Company Number: FR-JNJFOC-20200914495

PATIENT
  Age: 28 Year
  Sex: Female

DRUGS (6)
  1. HALDOL [Suspect]
     Active Substance: HALOPERIDOL
     Indication: SCHIZOPHRENIA
     Route: 065
  2. ZEBINIX [Concomitant]
     Active Substance: ESLICARBAZEPINE ACETATE
  3. EPITOMAX [Suspect]
     Active Substance: TOPIRAMATE
     Indication: PRODUCT USED FOR UNKNOWN INDICATION
     Route: 065
  4. EVEROLIMUS. [Concomitant]
     Active Substance: EVEROLIMUS
     Indication: LIPOMA
  5. PAROXETINE. [Suspect]
     Active Substance: PAROXETINE
  6. LEPTICUR [Concomitant]
     Active Substance: TROPATEPINE HYDROCHLORIDE

REACTIONS (2)
  - Hyperprolactinaemia [Unknown]
  - Galactorrhoea [Unknown]
